FAERS Safety Report 6667340-7 (Version None)
Quarter: 2010Q2

REPORT INFORMATION
  Report Type: 
  Country: None (occurrence: None)
  Receive Date: 20100405
  Receipt Date: 20100322
  Transmission Date: 20101027
  Serious: Yes (Hospitalization, Other)
  Sender: FDA-Public Use
  Company Number: US-ELI_LILLY_AND_COMPANY-US201002001926

PATIENT
  Sex: Female

DRUGS (10)
  1. FORTEO [Suspect]
     Indication: OSTEOPOROSIS
     Dosage: 20 UG, DAILY (1/D)
     Dates: start: 20091101
  2. PREMARIN [Concomitant]
     Dosage: UNK, UNKNOWN
     Route: 065
  3. SYNTHROID [Concomitant]
     Dosage: UNK, UNKNOWN
     Route: 065
  4. FENOFIBRATE [Concomitant]
     Dosage: UNK, UNKNOWN
     Route: 065
  5. FLEXERIL [Concomitant]
     Dosage: UNK, UNKNOWN
     Route: 065
  6. DIFLUNISAL [Concomitant]
     Dosage: UNK, UNKNOWN
     Route: 065
  7. TRAMADOL HCL [Concomitant]
     Dosage: UNK, UNKNOWN
     Route: 065
  8. CALTRATE [Concomitant]
  9. OSTEO [Concomitant]
  10. CENTRUM SILVER [Concomitant]

REACTIONS (3)
  - FALL [None]
  - PNEUMOTHORAX [None]
  - WRIST FRACTURE [None]
